FAERS Safety Report 14951114 (Version 1)
Quarter: 2018Q2

REPORT INFORMATION
  Report Type: Spontaneous
  Country: US (occurrence: US)
  Receive Date: 20180508
  Receipt Date: 20180508
  Transmission Date: 20180711
  Serious: Yes (Hospitalization, Disabling, Other)
  Sender: FDA-Public Use
  Company Number: None

PATIENT
  Age: 36 Year
  Sex: Female
  Weight: 85.5 kg

DRUGS (1)
  1. GADOLINIUM IN CONTRAST [Suspect]
     Active Substance: GADOLINIUM
     Indication: COLITIS ULCERATIVE
     Dates: start: 20180320, end: 20180418

REACTIONS (4)
  - Vomiting [None]
  - Abdominal pain upper [None]
  - Nausea [None]
  - Headache [None]

NARRATIVE: CASE EVENT DATE: 20180418
